FAERS Safety Report 24611346 (Version 1)
Quarter: 2024Q4

REPORT INFORMATION
  Report Type: Spontaneous
  Country: US (occurrence: US)
  Receive Date: 20241113
  Receipt Date: 20241113
  Transmission Date: 20250114
  Serious: Yes (Hospitalization)
  Sender: NOVARTIS
  Company Number: US-002147023-NVSC2024US218459

PATIENT
  Sex: Female

DRUGS (1)
  1. PROMACTA [Suspect]
     Active Substance: ELTROMBOPAG OLAMINE
     Indication: Chronic kidney disease
     Dosage: 50 MG, QD
     Route: 048
     Dates: start: 201707

REACTIONS (2)
  - Hip fracture [Unknown]
  - Product use in unapproved indication [Unknown]
